FAERS Safety Report 23320691 (Version 8)
Quarter: 2024Q3

REPORT INFORMATION
  Report Type: Spontaneous
  Country: CA (occurrence: CA)
  Receive Date: 20231220
  Receipt Date: 20240719
  Transmission Date: 20241017
  Serious: Yes (Other)
  Sender: PFIZER
  Company Number: CA-PFIZER INC-202300444233

PATIENT
  Age: 17 Year
  Sex: Male

DRUGS (2)
  1. ABRILADA [Suspect]
     Active Substance: ADALIMUMAB-AFZB
     Indication: Hidradenitis
     Dosage: 1 DF, WEEK0: 80MG THEN 40 MG EVERY OTHER WEEK STARTING AT WEEK 1
     Route: 058
     Dates: start: 20231124, end: 2024
  2. ABRILADA [Suspect]
     Active Substance: ADALIMUMAB-AFZB
     Dosage: 1 DF,RELOAD, WEEK 0 160MG, WEEK 2 80MG, THEN 40MG EVERY WEEK STARTING WEEK 4
     Route: 058
     Dates: start: 20240216

REACTIONS (3)
  - Pilonidal disease [Recovering/Resolving]
  - Therapeutic product effect incomplete [Unknown]
  - Off label use [Unknown]

NARRATIVE: CASE EVENT DATE: 20230101
